FAERS Safety Report 7508193-4 (Version None)
Quarter: 2011Q2

REPORT INFORMATION
  Report Type: 
  Country: None (occurrence: None)
  Receive Date: 20110527
  Receipt Date: 20110525
  Transmission Date: 20111010
  Serious: Yes (Other)
  Sender: FDA-Public Use
  Company Number: JP-PFIZER INC-2011112194

PATIENT

DRUGS (1)
  1. ZOLOFT [Suspect]
     Route: 048

REACTIONS (4)
  - CARDIAC ARREST [None]
  - ALTERED STATE OF CONSCIOUSNESS [None]
  - RESPIRATORY ARREST [None]
  - OVERDOSE [None]
